FAERS Safety Report 4609414-8 (Version None)
Quarter: 2005Q2

REPORT INFORMATION
  Report Type: 
  Country: None (occurrence: None)
  Receive Date: 20050301
  Receipt Date: 20041026
  Transmission Date: 20051028
  Serious: No
  Sender: FDA-Public Use
  Company Number: WAES 0410USA03904

PATIENT
  Sex: Male

DRUGS (4)
  1. ZETIA [Suspect]
     Dosage: 10 MG/ PO
     Route: 048
  2. CYANOCOBALAMIN [Concomitant]
  3. FOLIC ACID [Concomitant]
  4. PYRIDOXINE HCL [Concomitant]

REACTIONS (1)
  - EYE SWELLING [None]
